FAERS Safety Report 6867824-2 (Version None)
Quarter: 2010Q3

REPORT INFORMATION
  Report Type: 
  Country: None (occurrence: None)
  Receive Date: 20100722
  Receipt Date: 20100722
  Transmission Date: 20110219
  Serious: Yes (Hospitalization)
  Sender: FDA-Public Use
  Company Number: None

PATIENT
  Age: 32 Year
  Sex: Female
  Weight: 81.6475 kg

DRUGS (1)
  1. ZOLOFT [Suspect]
     Indication: ANXIETY
     Dosage: 50 MG 1 TIME DAILY PO
     Route: 048
     Dates: start: 20100611, end: 20100613

REACTIONS (5)
  - AGITATION [None]
  - ANXIETY [None]
  - DIARRHOEA [None]
  - HEART RATE INCREASED [None]
  - INSOMNIA [None]
